FAERS Safety Report 20394004 (Version 5)
Quarter: 2022Q2

REPORT INFORMATION
  Report Type: Report from Study
  Country: CA (occurrence: CA)
  Receive Date: 20220129
  Receipt Date: 20220613
  Transmission Date: 20220721
  Serious: Yes (Hospitalization, Other)
  Sender: FDA-Public Use
  Company Number: CA-ABBVIE-22K-028-4252297-00

PATIENT
  Age: 71 Year
  Sex: Female

DRUGS (1)
  1. RINVOQ [Suspect]
     Active Substance: UPADACITINIB
     Indication: Rheumatoid arthritis
     Route: 048
     Dates: start: 20211025

REACTIONS (16)
  - Biliary sepsis [Unknown]
  - Spinal operation [Unknown]
  - Spinal operation [Unknown]
  - Device material issue [Unknown]
  - Mobility decreased [Unknown]
  - Fall [Unknown]
  - Ankle fracture [Unknown]
  - Abdominal pain upper [Unknown]
  - Back pain [Unknown]
  - Blood pressure decreased [Unknown]
  - Heart rate decreased [Unknown]
  - Hepatic function abnormal [Unknown]
  - Device leakage [Unknown]
  - Gait disturbance [Unknown]
  - Gallbladder operation [Unknown]
  - Incision site pain [Unknown]

NARRATIVE: CASE EVENT DATE: 20220101
